FAERS Safety Report 5572496-3 (Version None)
Quarter: 2007Q4

REPORT INFORMATION
  Report Type: 
  Country: None (occurrence: None)
  Receive Date: 20071222
  Receipt Date: 20071213
  Transmission Date: 20080405
  Serious: Yes (Other)
  Sender: FDA-Public Use
  Company Number: US-PFIZER INC-2007089661

PATIENT
  Sex: Female
  Weight: 45.4 kg

DRUGS (2)
  1. CHANTIX [Suspect]
     Indication: SMOKING CESSATION THERAPY
     Route: 048
     Dates: start: 20071014, end: 20071018
  2. KLONOPIN [Concomitant]
     Route: 048

REACTIONS (4)
  - HALLUCINATION [None]
  - NAUSEA [None]
  - RASH [None]
  - URTICARIA [None]
